FAERS Safety Report 8394236-5 (Version None)
Quarter: 2012Q2

REPORT INFORMATION
  Report Type: 
  Country: None (occurrence: None)
  Receive Date: 20120530
  Receipt Date: 20120517
  Transmission Date: 20120825
  Serious: Yes (Other)
  Sender: FDA-Public Use
  Company Number: US-BRISTOL-MYERS SQUIBB COMPANY-16563629

PATIENT
  Age: 53 Year
  Sex: Female
  Weight: 86 kg

DRUGS (4)
  1. ZOLOFT [Concomitant]
     Indication: ANTIDEPRESSANT THERAPY
  2. YERVOY [Suspect]
     Indication: MALIGNANT MELANOMA STAGE IV
     Dosage: LAST DOSE:02MAY2012
  3. CELEXA [Concomitant]
     Indication: ANTIDEPRESSANT THERAPY
  4. LAMICTAL [Concomitant]

REACTIONS (8)
  - PANIC ATTACK [None]
  - BLOOD GLUCOSE INCREASED [None]
  - DECREASED APPETITE [None]
  - RASH PRURITIC [None]
  - DEPRESSION [None]
  - DIARRHOEA [None]
  - SUICIDAL IDEATION [None]
  - WEIGHT DECREASED [None]
